FAERS Safety Report 17357379 (Version 2)
Quarter: 2020Q1

REPORT INFORMATION
  Report Type: Spontaneous
  Country: US (occurrence: US)
  Receive Date: 20200131
  Receipt Date: 20200205
  Transmission Date: 20200409
  Serious: No
  Sender: FDA-Public Use
  Company Number: US-TEVA-2020-US-1174596

PATIENT

DRUGS (1)
  1. BUPRENORPHINE. [Suspect]
     Active Substance: BUPRENORPHINE
     Dosage: FORM STRENGTH: 10 MCG/HR
     Route: 062

REACTIONS (6)
  - Application site irritation [Unknown]
  - Scab [Unknown]
  - Application site pruritus [Unknown]
  - Application site discharge [Unknown]
  - Application site erosion [Unknown]
  - Application site erythema [Unknown]
